FAERS Safety Report 11860914 (Version 1)
Quarter: 2015Q4

REPORT INFORMATION
  Report Type: Spontaneous
  Country: FR (occurrence: FR)
  Receive Date: 20151222
  Receipt Date: 20151222
  Transmission Date: 20160305
  Serious: Yes (Death)
  Sender: FDA-Public Use
  Company Number: FR-PFIZER INC-2015451584

PATIENT
  Age: 72 Year
  Sex: Male

DRUGS (2)
  1. KARDEGIC [Suspect]
     Active Substance: ASPIRIN LYSINE
     Dosage: 300 MG, 1X/DAY
     Route: 048
     Dates: end: 20150614
  2. FRAGMINE [Suspect]
     Active Substance: DALTEPARIN SODIUM
     Dosage: 5000 IU, 1X/DAY
     Route: 058
     Dates: start: 20150613, end: 20150614

REACTIONS (2)
  - Cerebral haemorrhage [Fatal]
  - Condition aggravated [Fatal]

NARRATIVE: CASE EVENT DATE: 20150613
